FAERS Safety Report 5600246-0 (Version None)
Quarter: 2008Q1

REPORT INFORMATION
  Report Type: 
  Country: None (occurrence: None)
  Receive Date: 20080123
  Receipt Date: 20080110
  Transmission Date: 20080703
  Serious: Yes (Other)
  Sender: FDA-Public Use
  Company Number: BE-AMGEN-UK256698

PATIENT
  Sex: Male

DRUGS (13)
  1. PANITUMUMAB [Suspect]
     Indication: COLORECTAL CANCER
     Route: 042
     Dates: start: 20070831, end: 20071205
  2. IRINOTECAN [Suspect]
     Dates: start: 20070831
  3. NAVOBAN [Concomitant]
     Route: 042
  4. DEXAMETHASONE TAB [Concomitant]
     Route: 042
  5. POLARAMINE [Concomitant]
     Route: 042
  6. ATROPINE [Concomitant]
     Route: 058
  7. CALCIUM FOLINATE [Concomitant]
  8. OCTREOTIDE ACETATE [Concomitant]
     Route: 030
     Dates: start: 20070914
  9. LOPERAMIDE HCL [Concomitant]
     Route: 048
     Dates: start: 20070916
  10. OPIUM TINCTURE [Concomitant]
     Dates: start: 20071121
  11. CETIRIZINE HCL [Concomitant]
     Dates: start: 20071101
  12. HEXACHLOROPHENE [Concomitant]
     Route: 061
  13. UNSPECIFIED TOPICAL PRODUCT [Concomitant]
     Route: 061

REACTIONS (1)
  - ANAPHYLACTIC REACTION [None]
